FAERS Safety Report 21042384 (Version 1)
Quarter: 2022Q3

REPORT INFORMATION
  Report Type: Spontaneous
  Country: JP (occurrence: JP)
  Receive Date: 20220705
  Receipt Date: 20220705
  Transmission Date: 20221026
  Serious: Yes (Hospitalization, Other)
  Sender: FDA-Public Use
  Company Number: JP-BRISTOL-MYERS SQUIBB COMPANY-2022-050798

PATIENT

DRUGS (7)
  1. YERVOY [Suspect]
     Active Substance: IPILIMUMAB
     Indication: Renal cell carcinoma
     Dosage: OY 1ST COURSE
     Route: 041
     Dates: start: 20210901
  2. YERVOY [Suspect]
     Active Substance: IPILIMUMAB
     Dosage: OY 3RD COURSE
     Route: 041
     Dates: start: 20211013
  3. YERVOY [Suspect]
     Active Substance: IPILIMUMAB
     Dosage: OY 4TH COURSE
     Route: 041
     Dates: start: 20211117
  4. OPDIVO [Suspect]
     Active Substance: NIVOLUMAB
     Indication: Renal cell carcinoma
     Dosage: OY 1ST COURSE
     Route: 065
     Dates: start: 20210901
  5. OPDIVO [Suspect]
     Active Substance: NIVOLUMAB
     Dosage: OY 3RD COURSE
     Route: 065
     Dates: start: 20211013
  6. OPDIVO [Suspect]
     Active Substance: NIVOLUMAB
     Dosage: OY 4TH COURSE
     Route: 065
     Dates: start: 20211117
  7. OPDIVO [Suspect]
     Active Substance: NIVOLUMAB
     Dosage: O 3RD COURSE
     Route: 065
     Dates: start: 20220202

REACTIONS (6)
  - Immune-mediated adrenal insufficiency [Unknown]
  - Nausea [Recovering/Resolving]
  - Vomiting [Unknown]
  - Constipation [Recovering/Resolving]
  - Headache [Recovered/Resolved]
  - Pyrexia [Recovered/Resolved]

NARRATIVE: CASE EVENT DATE: 20211104
